FAERS Safety Report 15599497 (Version 1)
Quarter: 2018Q4

REPORT INFORMATION
  Report Type: Not Available
  Country: US (occurrence: US)
  Receive Date: 20181108
  Receipt Date: 20181108
  Transmission Date: 20190205
  Serious: No
  Sender: FDA-Public Use
  Company Number: US-NEUROCRINE BIOSCIENCES INC.-2018NBI03166

PATIENT
  Age: 65 Year
  Sex: Female
  Weight: 90.8 kg

DRUGS (2)
  1. INGREZZA [Suspect]
     Active Substance: VALBENAZINE
     Indication: TARDIVE DYSKINESIA
     Route: 048
     Dates: start: 20181015, end: 20181021
  2. INGREZZA [Suspect]
     Active Substance: VALBENAZINE

REACTIONS (6)
  - Abdominal pain [Not Recovered/Not Resolved]
  - Nausea [Unknown]
  - Retching [Unknown]
  - Dizziness [Not Recovered/Not Resolved]
  - Abnormal dreams [Unknown]
  - Diarrhoea [Not Recovered/Not Resolved]

NARRATIVE: CASE EVENT DATE: 201810
